FAERS Safety Report 8009306-0 (Version None)
Quarter: 2011Q4

REPORT INFORMATION
  Report Type: 
  Country: None (occurrence: None)
  Receive Date: 20111227
  Receipt Date: 20111219
  Transmission Date: 20120403
  Serious: Yes (Hospitalization)
  Sender: FDA-Public Use
  Company Number: US-MPIJNJ-2011-06488

PATIENT
  Age: 81 Year
  Sex: Female
  Weight: 55.147 kg

DRUGS (1)
  1. VELCADE [Suspect]
     Indication: MULTIPLE MYELOMA
     Dosage: 1.52 MG, CYCLIC
     Route: 042
     Dates: start: 20101129, end: 20110919

REACTIONS (1)
  - MUSCULOSKELETAL CHEST PAIN [None]
